FAERS Safety Report 6758301-8 (Version None)
Quarter: 2010Q2

REPORT INFORMATION
  Report Type: 
  Country: None (occurrence: None)
  Receive Date: 20100524
  Receipt Date: 20100407
  Transmission Date: 20101027
  Serious: No
  Sender: FDA-Public Use
  Company Number: 009953

PATIENT
  Sex: Female

DRUGS (1)
  1. CIMZIA [Suspect]
     Indication: CROHN'S DISEASE
     Dosage: SUBCUTANEOUS
     Route: 058
     Dates: start: 20090507

REACTIONS (6)
  - DEPRESSION [None]
  - DIARRHOEA [None]
  - DRUG EFFECT DECREASED [None]
  - FATIGUE [None]
  - MALAISE [None]
  - PAIN [None]
